FAERS Safety Report 7282422-7 (Version None)
Quarter: 2011Q1

REPORT INFORMATION
  Report Type: 
  Country: None (occurrence: None)
  Receive Date: 20110131
  Receipt Date: 20110118
  Transmission Date: 20110831
  Serious: Yes (Other)
  Sender: FDA-Public Use
  Company Number: MC201100018

PATIENT
  Age: 45 Year
  Sex: Female
  Weight: 89.8 kg

DRUGS (3)
  1. ANGIOMAX [Suspect]
     Dosage: INFUSION
  2. ANGIOMAX [Suspect]
     Indication: PERCUTANEOUS CORONARY INTERVENTION
     Dosage: INTRAVENOUS
     Route: 042
  3. EPINEPHRINE [Suspect]
     Dosage: 0.3 ML, SUBCUTANEOUS
     Route: 058
     Dates: start: 20101227

REACTIONS (1)
  - ANAPHYLACTIC SHOCK [None]
